FAERS Safety Report 7011052-7 (Version None)
Quarter: 2010Q3

REPORT INFORMATION
  Report Type: 
  Country: None (occurrence: None)
  Receive Date: 20100923
  Receipt Date: 20081027
  Transmission Date: 20110219
  Serious: No
  Sender: FDA-Public Use
  Company Number: US-WYE-H06586408

PATIENT
  Sex: Female
  Weight: 59.02 kg

DRUGS (2)
  1. PREMARIN [Suspect]
     Indication: OESTROGEN THERAPY
     Route: 067
     Dates: start: 20080301
  2. BONIVA [Concomitant]

REACTIONS (2)
  - PRODUCT QUALITY ISSUE [None]
  - VAGINAL INFECTION [None]
